FAERS Safety Report 12046178 (Version 1)
Quarter: 2016Q1

REPORT INFORMATION
  Report Type: Report from Study
  Country: CO (occurrence: CO)
  Receive Date: 20160208
  Receipt Date: 20160208
  Transmission Date: 20160526
  Serious: Yes (Life-Threatening)
  Sender: FDA-Public Use
  Company Number: PHHY2016CO016697

PATIENT
  Sex: Male
  Weight: 78 kg

DRUGS (1)
  1. SANDOSTATIN LAR DEPOT [Suspect]
     Active Substance: OCTREOTIDE ACETATE
     Indication: PITUITARY TUMOUR
     Dosage: 30 MG, QMO
     Route: 030
     Dates: start: 20151113

REACTIONS (3)
  - Depressed mood [Unknown]
  - Suicidal ideation [Unknown]
  - Malaise [Unknown]
